FAERS Safety Report 26050928 (Version 1)
Quarter: 2025Q4

REPORT INFORMATION
  Report Type: Spontaneous
  Country: EU (occurrence: EU)
  Receive Date: 20251116
  Receipt Date: 20251116
  Transmission Date: 20260118
  Serious: Yes (Other)
  Sender: ALEXION PHARMACEUTICALS
  Company Number: None

PATIENT
  Age: 77 Year
  Sex: Male
  Weight: 76 kg

DRUGS (1)
  1. ROSUVASTATIN [Suspect]
     Active Substance: ROSUVASTATIN
     Dosage: 5 MILLIGRAM, 1/DAY
     Dates: start: 20240101

REACTIONS (3)
  - Neck pain [Recovering/Resolving]
  - Back pain [Recovering/Resolving]
  - Musculoskeletal stiffness [Recovering/Resolving]
